FAERS Safety Report 4323366-X (Version None)
Quarter: 2004Q1

REPORT INFORMATION
  Report Type: 
  Country: None (occurrence: None)
  Receive Date: 20040325
  Receipt Date: 20030827
  Transmission Date: 20041129
  Serious: Yes (Life-Threatening)
  Sender: FDA-Public Use
  Company Number: DE-BRISTOL-MYERS SQUIBB COMPANY-12367553

PATIENT
  Age: 39 Year
  Sex: Male

DRUGS (4)
  1. ATAZANAVIR [Suspect]
     Indication: HIV INFECTION
     Dates: start: 20030731
  2. VIDEX [Suspect]
     Dates: start: 20030704
  3. ZIAGEN [Suspect]
     Dates: start: 20030704
  4. NORVIR [Concomitant]

REACTIONS (6)
  - BLOOD CREATININE INCREASED [None]
  - HEADACHE [None]
  - NAUSEA [None]
  - PAIN IN EXTREMITY [None]
  - PYREXIA [None]
  - VOMITING [None]
